FAERS Safety Report 10565599 (Version 2)
Quarter: 2014Q4

REPORT INFORMATION
  Report Type: Spontaneous
  Country: US (occurrence: None)
  Receive Date: 20141103
  Receipt Date: 20141126
  Transmission Date: 20150529
  Serious: Yes (Other)
  Sender: FDA-Public Use
  Company Number: 2014-20589

PATIENT
  Age: 55 Year
  Sex: Male

DRUGS (2)
  1. EYLEA [Suspect]
     Active Substance: AFLIBERCEPT
     Indication: AGE-RELATED MACULAR DEGENERATION
     Dosage: EVERY 6-8 WKS.
     Route: 031
     Dates: start: 20141017, end: 20141017
  2. LOSARTAN [Concomitant]
     Active Substance: LOSARTAN

REACTIONS (7)
  - Contact lens intolerance [None]
  - Endophthalmitis [None]
  - Eye pain [None]
  - Vitrectomy [None]
  - Photophobia [None]
  - Eye irritation [None]
  - Eye infection staphylococcal [None]

NARRATIVE: CASE EVENT DATE: 20141023
